FAERS Safety Report 7998723-0 (Version None)
Quarter: 2011Q4

REPORT INFORMATION
  Report Type: 
  Country: None (occurrence: None)
  Receive Date: 20111221
  Receipt Date: 20110414
  Transmission Date: 20120403
  Serious: Yes (Other)
  Sender: FDA-Public Use
  Company Number: SG-CELGENEUS-141-21660-11041896

PATIENT

DRUGS (1)
  1. ABRAXANE [Suspect]
     Dosage: 100 MILLIGRAM/SQ. METER
     Route: 065

REACTIONS (7)
  - NEUTROPENIA [None]
  - DECREASED APPETITE [None]
  - HYPOCALCAEMIA [None]
  - ANAEMIA [None]
  - NAUSEA [None]
  - VOMITING [None]
  - FEBRILE NEUTROPENIA [None]
